FAERS Safety Report 7307684-9 (Version None)
Quarter: 2011Q1

REPORT INFORMATION
  Report Type: 
  Country: None (occurrence: None)
  Receive Date: 20110223
  Receipt Date: 20110215
  Transmission Date: 20110831
  Serious: Yes (Other)
  Sender: FDA-Public Use
  Company Number: US-SANOFI-AVENTIS-2010SA076905

PATIENT
  Age: 77 Year
  Sex: Male
  Weight: 82 kg

DRUGS (12)
  1. PLAVIX [Suspect]
     Indication: CORONARY ARTERY DISEASE
     Route: 048
     Dates: start: 20090325, end: 20101221
  2. PLAVIX [Suspect]
     Route: 048
     Dates: start: 20090325, end: 20101221
  3. ZYRTEC [Concomitant]
  4. PLAVIX [Suspect]
     Indication: STENT PLACEMENT
     Route: 048
     Dates: start: 20090325, end: 20101221
  5. DIOVAN HCT [Concomitant]
     Indication: HYPERTENSION
     Dosage: 80/12.5MG DAILY
  6. LIPITOR [Concomitant]
     Dates: start: 20100701
  7. KLONOPIN [Concomitant]
     Indication: ANXIETY
  8. LIPITOR [Concomitant]
     Dates: start: 20090101
  9. ASPIRIN [Concomitant]
     Indication: CORONARY ARTERY DISEASE
     Dates: start: 20090325
  10. GLYCERYL TRINITRATE [Concomitant]
     Indication: CHEST PAIN
  11. ATENOLOL [Concomitant]
     Indication: CORONARY ARTERY DISEASE
     Dates: start: 20090325, end: 20101001
  12. XALATAN [Concomitant]

REACTIONS (9)
  - ATRIAL FIBRILLATION [None]
  - CONTUSION [None]
  - HYPERTENSION [None]
  - HEART RATE INCREASED [None]
  - CONDITION AGGRAVATED [None]
  - HAEMORRHAGE [None]
  - ASTHENIA [None]
  - SICK SINUS SYNDROME [None]
  - BRADYCARDIA [None]
